FAERS Safety Report 8174761-2 (Version None)
Quarter: 2012Q1

REPORT INFORMATION
  Report Type: 
  Country: None (occurrence: None)
  Receive Date: 20120229
  Receipt Date: 20120214
  Transmission Date: 20120608
  Serious: Yes (Other)
  Sender: FDA-Public Use
  Company Number: PHHY2011US24024

PATIENT
  Sex: Female

DRUGS (8)
  1. SPRYCEL [Suspect]
     Dosage: 50 MG, DAILY
     Route: 048
     Dates: end: 20110302
  2. TASIGNA [Suspect]
     Indication: SYSTEMIC MASTOCYTOSIS
     Dosage: 400 MG, BID
     Dates: start: 20071228, end: 20080115
  3. ZOMETA [Suspect]
  4. LIPITOR [Suspect]
     Indication: HYPERCHOLESTEROLAEMIA
     Dosage: 10 MG, QHS
     Dates: end: 20080125
  5. TRILISATE [Suspect]
     Indication: PAIN
     Dosage: 750 MG, BID
     Route: 048
     Dates: start: 20080104, end: 20080125
  6. LEVOTHYROXINE SODIUM [Concomitant]
     Indication: THYROID DISORDER
     Dosage: 0.1 OT, UNK
  7. AMBIEN CR [Concomitant]
     Indication: INSOMNIA
     Dosage: 12.5 OT, QHS
  8. ZANTAC [Concomitant]
     Indication: GASTROOESOPHAGEAL REFLUX DISEASE
     Dosage: 150 MG, PRN
     Dates: start: 20071018

REACTIONS (10)
  - CONDITION AGGRAVATED [None]
  - LIVER FUNCTION TEST ABNORMAL [None]
  - DEPRESSED MOOD [None]
  - ALANINE AMINOTRANSFERASE INCREASED [None]
  - NAUSEA [None]
  - DYSPNOEA [None]
  - ANXIETY [None]
  - VOMITING [None]
  - PRURITUS [None]
  - ASPARTATE AMINOTRANSFERASE INCREASED [None]
